FAERS Safety Report 4287087-4 (Version None)
Quarter: 2004Q1

REPORT INFORMATION
  Report Type: 
  Country: None (occurrence: None)
  Receive Date: 20040128
  Receipt Date: 20030627
  Transmission Date: 20041129
  Serious: Yes (Hospitalization)
  Sender: FDA-Public Use
  Company Number: 0307-155

PATIENT
  Age: 1 Day
  Sex: Male
  Weight: 0.8 kg

DRUGS (6)
  1. CUROSURF [Suspect]
     Indication: NEONATAL RESPIRATORY DISTRESS SYNDROME
     Dosage: 1.5 ML, INTRATRACHEAL
     Route: 039
     Dates: start: 20030610
  2. AMINOPHYLLINE [Concomitant]
  3. STESOLID NOVUM, [Concomitant]
  4. MORPHINEL [Concomitant]
  5. FUROSEMIDE [Concomitant]
  6. HUMAN PLASMA PROTEIN FRACTION [Concomitant]

REACTIONS (1)
  - PULMONARY HAEMORRHAGE [None]
